FAERS Safety Report 16312385 (Version 1)
Quarter: 2019Q2

REPORT INFORMATION
  Report Type: Spontaneous
  Country: NL (occurrence: NL)
  Receive Date: 20190515
  Receipt Date: 20190515
  Transmission Date: 20190711
  Serious: Yes (Hospitalization)
  Sender: FDA-Public Use
  Company Number: NL-TEVA-2019-NL-1049662

PATIENT
  Age: 47 Year
  Sex: Male

DRUGS (1)
  1. DOXYCYCLINE. [Suspect]
     Active Substance: DOXYCYCLINE
     Indication: LYME DISEASE
     Route: 065

REACTIONS (5)
  - Vitamin K deficiency [Recovered/Resolved]
  - Dysbiosis [Recovered/Resolved]
  - Spontaneous haematoma [Recovered/Resolved]
  - Normocytic anaemia [Recovered/Resolved]
  - Haematuria [Recovered/Resolved]
